FAERS Safety Report 21690150 (Version 1)
Quarter: 2022Q4

REPORT INFORMATION
  Report Type: Spontaneous
  Country: TR (occurrence: TR)
  Receive Date: 20221206
  Receipt Date: 20221206
  Transmission Date: 20230113
  Serious: Yes (Hospitalization, Other)
  Sender: FDA-Public Use
  Company Number: TR-NAPPMUNDI-GBR-2022-0103502

PATIENT
  Age: 36 Year
  Sex: Female

DRUGS (1)
  1. MORPHINE SULFATE [Suspect]
     Active Substance: MORPHINE SULFATE
     Indication: Renal colic
     Dosage: 5 MILLIGRAM
     Route: 042

REACTIONS (1)
  - Kounis syndrome [Recovered/Resolved]
